FAERS Safety Report 10173162 (Version 1)
Quarter: 2014Q2

REPORT INFORMATION
  Report Type: Spontaneous
  Country: BR (occurrence: BR)
  Receive Date: 20140515
  Receipt Date: 20140515
  Transmission Date: 20141212
  Serious: Yes (Other)
  Sender: FDA-Public Use
  Company Number: BR-BAYER-2014-067719

PATIENT
  Age: 52 Year
  Sex: Female

DRUGS (2)
  1. GADOVIST [Suspect]
     Indication: NUCLEAR MAGNETIC RESONANCE IMAGING
     Dosage: UNK
     Route: 042
     Dates: start: 20140506, end: 20140506
  2. GADOVIST [Suspect]
     Indication: NEOPLASM MALIGNANT

REACTIONS (5)
  - Bronchospasm [Recovered/Resolved]
  - Face oedema [Recovered/Resolved]
  - Skin plaque [Recovered/Resolved]
  - Dysphonia [Recovered/Resolved]
  - Laryngospasm [Recovered/Resolved]
